FAERS Safety Report 13575200 (Version 1)
Quarter: 2017Q2

REPORT INFORMATION
  Report Type: Spontaneous
  Country: US (occurrence: US)
  Receive Date: 20170523
  Receipt Date: 20170523
  Transmission Date: 20170830
  Serious: No
  Sender: FDA-Public Use
  Company Number: None

PATIENT
  Age: 55 Year
  Sex: Female

DRUGS (1)
  1. STELARA [Suspect]
     Active Substance: USTEKINUMAB
     Indication: RASH PAPULOSQUAMOUS
     Dosage: 90MG EVERY 3 MONTHS SQ
     Route: 058
     Dates: start: 20170309, end: 20170509

REACTIONS (3)
  - Nausea [None]
  - Vomiting [None]
  - Hepatitis C [None]

NARRATIVE: CASE EVENT DATE: 20170516
